FAERS Safety Report 17063898 (Version 1)
Quarter: 2019Q4

REPORT INFORMATION
  Report Type: Spontaneous
  Country: GB (occurrence: DE)
  Receive Date: 20191122
  Receipt Date: 20191122
  Transmission Date: 20200122
  Serious: Yes (Hospitalization, Other)
  Sender: FDA-Public Use
  Company Number: DE-BAYER-2019-207946

PATIENT
  Age: 47 Year
  Sex: Female
  Weight: 68 kg

DRUGS (4)
  1. NAPROXEN-NATRIUM [Suspect]
     Active Substance: NAPROXEN SODIUM
     Route: 048
  2. OMEPRAZOLE. [Concomitant]
     Active Substance: OMEPRAZOLE
     Route: 065
  3. CERDELGA [Suspect]
     Active Substance: ELIGLUSTAT
     Indication: GAUCHER^S DISEASE
     Dosage: 2 DF, UNK
     Route: 048
     Dates: start: 20180920, end: 20190418
  4. CERDELGA [Suspect]
     Active Substance: ELIGLUSTAT
     Indication: GAUCHER^S DISEASE
     Dosage: 2 DF, UNK
     Route: 048
     Dates: start: 20190424

REACTIONS (3)
  - Syncope [Recovered/Resolved]
  - Presyncope [Unknown]
  - Therapy change [Unknown]

NARRATIVE: CASE EVENT DATE: 20190322
